FAERS Safety Report 23232326 (Version 1)
Quarter: 2023Q4

REPORT INFORMATION
  Report Type: Spontaneous
  Country: US (occurrence: US)
  Receive Date: 20231127
  Receipt Date: 20231127
  Transmission Date: 20240110
  Serious: No
  Sender: FDA-Public Use
  Company Number: US-drreddys-SPO/USA/23/0183031

PATIENT
  Age: 16 Year
  Sex: Female

DRUGS (2)
  1. ZENATANE [Suspect]
     Active Substance: ISOTRETINOIN
     Indication: Product used for unknown indication
     Dosage: RMA ISSUE DATE: 12 JULY 2023 01:38:55 PM
  2. ZENATANE [Suspect]
     Active Substance: ISOTRETINOIN
     Dosage: 08 AUGUST 2023 12:51:30 PM, 02 SEPTEMBER 2023 01:46:25 PM

REACTIONS (1)
  - Product dose omission issue [Unknown]
